FAERS Safety Report 5715625-0 (Version None)
Quarter: 2008Q2

REPORT INFORMATION
  Report Type: 
  Country: None (occurrence: None)
  Receive Date: 20080424
  Receipt Date: 20080316
  Transmission Date: 20081010
  Serious: No
  Sender: FDA-Public Use
  Company Number: US-BAYER-200817048NA

PATIENT
  Age: 21 Year
  Sex: Female
  Weight: 70 kg

DRUGS (4)
  1. MIRENA [Suspect]
     Indication: ANAEMIA
     Route: 015
     Dates: start: 20080101
  2. PHENTERMINE [Concomitant]
     Route: 048
  3. VITAMIN B6 [Concomitant]
  4. VITAMIN B-12 [Concomitant]

REACTIONS (1)
  - VAGINAL HAEMORRHAGE [None]
